FAERS Safety Report 24104459 (Version 1)
Quarter: 2024Q3

REPORT INFORMATION
  Report Type: Spontaneous
  Country: FR (occurrence: FR)
  Receive Date: 20240717
  Receipt Date: 20240717
  Transmission Date: 20241016
  Serious: Yes (Hospitalization, Other)
  Sender: MERCK
  Company Number: None

PATIENT
  Age: 71 Year
  Sex: Male

DRUGS (1)
  1. PEMBROLIZUMAB [Suspect]
     Active Substance: PEMBROLIZUMAB
     Indication: Malignant melanoma stage II
     Dosage: 400 MILLIGRAM, EVERY 6 WEEKS
     Route: 042
     Dates: start: 20231005, end: 20240522

REACTIONS (4)
  - Hallucination [Recovering/Resolving]
  - Capillary leak syndrome [Recovering/Resolving]
  - Extrapyramidal disorder [Recovering/Resolving]
  - Immune-mediated hypophysitis [Recovering/Resolving]

NARRATIVE: CASE EVENT DATE: 20240610
